FAERS Safety Report 8378230-6 (Version None)
Quarter: 2012Q2

REPORT INFORMATION
  Report Type: 
  Country: None (occurrence: None)
  Receive Date: 20120521
  Receipt Date: 20120515
  Transmission Date: 20120825
  Serious: Yes (Other)
  Sender: FDA-Public Use
  Company Number: GER/UKI/12/0024338

PATIENT
  Age: 85 Year
  Sex: Male

DRUGS (5)
  1. TAMSULOSIN HCL [Concomitant]
  2. ASPIRIN [Concomitant]
  3. FINASTERIDE [Suspect]
     Indication: BENIGN PROSTATIC HYPERPLASIA
     Dosage: 5 MG, 1 IN 1 D, ORAL
     Route: 048
     Dates: start: 20120405, end: 20120411
  4. DOXAZOSIN MESYLATE [Concomitant]
  5. CARBAMAZEPINE [Concomitant]

REACTIONS (1)
  - ATRIAL FLUTTER [None]
